FAERS Safety Report 9008701 (Version 1)
Quarter: 2013Q1

REPORT INFORMATION
  Report Type: Spontaneous
  Country: JP (occurrence: JP)
  Receive Date: 20130111
  Receipt Date: 20130111
  Transmission Date: 20140127
  Serious: Yes (Life-Threatening, Hospitalization, Other)
  Sender: FDA-Public Use
  Company Number: JP-PFIZER INC-2012328632

PATIENT
  Age: 78 Year
  Sex: Female
  Weight: 41 kg

DRUGS (5)
  1. LYRICA [Suspect]
     Indication: ANALGESIC THERAPY
     Dosage: 75 MG, 1X/DAY
     Route: 048
     Dates: start: 20121223, end: 20121225
  2. PREDNISOLONE [Suspect]
     Indication: ANALGESIC THERAPY
     Dosage: UNK
     Route: 048
  3. TETRAMIDE [Suspect]
     Indication: PAIN
     Dosage: 10 MG, 1X/DAY
     Route: 048
     Dates: start: 20121220, end: 20121225
  4. TRAMCET [Concomitant]
     Indication: ANALGESIC THERAPY
     Dosage: 1 DF, 3X/DAY
     Route: 048
     Dates: start: 20121217, end: 20121219
  5. TRAMCET [Concomitant]
     Dosage: 2 DF, 3X/DAY
     Dates: start: 20121220, end: 20121225

REACTIONS (4)
  - Renal failure [Not Recovered/Not Resolved]
  - Altered state of consciousness [Recovered/Resolved with Sequelae]
  - Enterococcal sepsis [Unknown]
  - Liver disorder [Unknown]
